FAERS Safety Report 15615529 (Version 2)
Quarter: 2018Q4

REPORT INFORMATION
  Report Type: Report from Study
  Country: GB (occurrence: GB)
  Receive Date: 20181114
  Receipt Date: 20181116
  Transmission Date: 20190205
  Serious: Yes (Other)
  Sender: FDA-Public Use
  Company Number: GB-TEVA-2018-GB-973957

PATIENT
  Sex: Female

DRUGS (5)
  1. MELPHALAN. [Suspect]
     Active Substance: MELPHALAN
     Indication: BONE MARROW CONDITIONING REGIMEN
     Dosage: ON DAY 3
     Route: 065
  2. ANAKINRA [Suspect]
     Active Substance: ANAKINRA
     Indication: STILL^S DISEASE
     Route: 065
  3. FLUDARABINE [Suspect]
     Active Substance: FLUDARABINE PHOSPHATE
     Indication: BONE MARROW CONDITIONING REGIMEN
     Dosage: 30 MG/M2 DAILY; FROM DAYS 7 TO 3
     Route: 065
  4. CICLOSPORIN [Suspect]
     Active Substance: CYCLOSPORINE
     Indication: STILL^S DISEASE
     Route: 065
  5. ALEMTUZUMAB [Suspect]
     Active Substance: ALEMTUZUMAB
     Indication: BONE MARROW CONDITIONING REGIMEN
     Dosage: FROM DAYS 8 TO 4
     Route: 065

REACTIONS (10)
  - Left ventricular dysfunction [Unknown]
  - Graft versus host disease in gastrointestinal tract [Unknown]
  - Haemophagocytic lymphohistiocytosis [Unknown]
  - Fasciitis [Unknown]
  - Graft versus host disease in skin [Unknown]
  - Herpes zoster [Unknown]
  - Osteonecrosis [Unknown]
  - Adenovirus infection [Unknown]
  - Serratia infection [Unknown]
  - Viraemia [Unknown]
